FAERS Safety Report 6806057-2 (Version None)
Quarter: 2010Q2

REPORT INFORMATION
  Report Type: 
  Country: None (occurrence: None)
  Receive Date: 20100629
  Receipt Date: 20071209
  Transmission Date: 20101027
  Serious: No
  Sender: FDA-Public Use
  Company Number: US-PFIZER INC-2007103920

PATIENT
  Sex: Male
  Weight: 108.86 kg

DRUGS (6)
  1. TIKOSYN [Suspect]
     Indication: CARDIAC DISORDER
     Dosage: INTERVAL: EVERY DAY
     Route: 048
     Dates: start: 20050101
  2. LIPITOR [Concomitant]
     Indication: BLOOD CHOLESTEROL
     Route: 048
  3. ZETIA [Concomitant]
     Indication: BLOOD CHOLESTEROL
     Route: 048
  4. WARFARIN [Concomitant]
     Route: 048
  5. EFFEXOR [Concomitant]
     Route: 048
  6. FOLIC ACID [Concomitant]
     Route: 048

REACTIONS (2)
  - DIZZINESS [None]
  - HEADACHE [None]
